FAERS Safety Report 13457794 (Version 1)
Quarter: 2017Q2

REPORT INFORMATION
  Report Type: Spontaneous
  Country: US (occurrence: US)
  Receive Date: 20170419
  Receipt Date: 20170419
  Transmission Date: 20170830
  Serious: No
  Sender: FDA-Public Use
  Company Number: US-CELGENEUS-USA-20170402806

PATIENT
  Age: 74 Year
  Sex: Female
  Weight: 87.89 kg

DRUGS (1)
  1. OTEZLA [Suspect]
     Active Substance: APREMILAST
     Indication: PRODUCT USED FOR UNKNOWN INDICATION
     Dosage: 60 MILLIGRAM
     Route: 048
     Dates: start: 201703

REACTIONS (5)
  - Flatulence [Not Recovered/Not Resolved]
  - Food intolerance [Not Recovered/Not Resolved]
  - Constipation [Recovering/Resolving]
  - Weight decreased [Not Recovered/Not Resolved]
  - Therapeutic response unexpected [Recovered/Resolved]

NARRATIVE: CASE EVENT DATE: 201703
